FAERS Safety Report 14111195 (Version 2)
Quarter: 2018Q2

REPORT INFORMATION
  Report Type: Spontaneous
  Country: US (occurrence: US)
  Receive Date: 20171020
  Receipt Date: 20180604
  Transmission Date: 20180711
  Serious: No
  Sender: FDA-Public Use
  Company Number: US-GLAXOSMITHKLINE-US2017159896

PATIENT
  Sex: Female

DRUGS (10)
  1. FLUTICASONE PROPIONATE NASAL SPRAY [Concomitant]
     Active Substance: FLUTICASONE PROPIONATE
  2. AZELASTINE NASAL [Concomitant]
  3. BREO ELLIPTA [Suspect]
     Active Substance: FLUTICASONE FUROATE\VILANTEROL TRIFENATATE
     Indication: ASTHMA
     Dosage: 1 PUFF(S), 1D
     Route: 055
  4. METFORMIN [Concomitant]
     Active Substance: METFORMIN HYDROCHLORIDE
  5. FLOVENT DISKUS [Suspect]
     Active Substance: FLUTICASONE PROPIONATE
     Indication: COUGH
     Dosage: 1 DF, UNK
  6. TAMOXIFENE [Concomitant]
     Active Substance: TAMOXIFEN
  7. FLOVENT DISKUS [Suspect]
     Active Substance: FLUTICASONE PROPIONATE
     Indication: ASTHMA
     Dosage: 1 PUFF(S), BID
     Route: 055
     Dates: start: 2016
  8. SINGULAIR [Concomitant]
     Active Substance: MONTELUKAST SODIUM
  9. MUCINEX [Concomitant]
     Active Substance: GUAIFENESIN
  10. ALLEGRA [Concomitant]
     Active Substance: FEXOFENADINE HYDROCHLORIDE

REACTIONS (9)
  - Dysphonia [Unknown]
  - Pulmonary function test decreased [Unknown]
  - Glossodynia [Not Recovered/Not Resolved]
  - Respiratory tract inflammation [Unknown]
  - Condition aggravated [Unknown]
  - Cough [Unknown]
  - Food allergy [Not Recovered/Not Resolved]
  - Circumstance or information capable of leading to medication error [Unknown]
  - Intentional dose omission [Unknown]
